FAERS Safety Report 18472852 (Version 2)
Quarter: 2020Q4

REPORT INFORMATION
  Report Type: Spontaneous
  Country: AU (occurrence: AU)
  Receive Date: 20201106
  Receipt Date: 20201201
  Transmission Date: 20210114
  Serious: Yes (Other)
  Sender: FDA-Public Use
  Company Number: AU-BAYER-2020-233683

PATIENT
  Age: 43 Year
  Sex: Female

DRUGS (4)
  1. NICORETTE [NICOTINE] [Concomitant]
     Route: 062
  2. PRISTIQ EXTENDED-RELEASE [Concomitant]
     Active Substance: DESVENLAFAXINE SUCCINATE
     Dosage: 200 MG, QD
  3. MIRENA [Suspect]
     Active Substance: LEVONORGESTREL
     Dosage: 20 ?G PER DAY CONTINUOUSLY
     Route: 015
     Dates: start: 20180808
  4. TOPIRAMATE. [Concomitant]
     Active Substance: TOPIRAMATE
     Dosage: 50 MG, QD

REACTIONS (2)
  - Papilloedema [Not Recovered/Not Resolved]
  - Idiopathic intracranial hypertension [Not Recovered/Not Resolved]

NARRATIVE: CASE EVENT DATE: 2019
